FAERS Safety Report 7118929-2 (Version None)
Quarter: 2010Q4

REPORT INFORMATION
  Report Type: 
  Country: None (occurrence: None)
  Receive Date: 20101123
  Receipt Date: 20101117
  Transmission Date: 20110411
  Serious: Yes (Hospitalization)
  Sender: FDA-Public Use
  Company Number: US-B.I. PHARMACEUTICALS,INC./RIDGEFIELD-2010-BP-09837BP

PATIENT
  Sex: Female

DRUGS (15)
  1. SPIRIVA [Suspect]
     Indication: CHRONIC OBSTRUCTIVE PULMONARY DISEASE
     Dosage: 18 MCG
     Route: 055
     Dates: end: 20100801
  2. SPIRIVA [Suspect]
     Dosage: 18 MCG
     Route: 055
     Dates: start: 20100801
  3. ADVAIR DISKUS 100/50 [Concomitant]
     Indication: CHRONIC OBSTRUCTIVE PULMONARY DISEASE
  4. INSULIN [Concomitant]
     Indication: DIABETES MELLITUS
  5. ARIMIDEX [Concomitant]
  6. LASIX [Concomitant]
  7. CLONAZEPAM [Concomitant]
  8. THEO-DUR [Concomitant]
  9. SPIRONOLACT [Concomitant]
  10. BYSTOLIC [Concomitant]
  11. TICLOPIDINE HCL [Concomitant]
  12. ACTOPLUS MET [Concomitant]
  13. OMEPRAZOLE [Concomitant]
  14. ZOCOR [Concomitant]
  15. ASPIRIN [Concomitant]

REACTIONS (2)
  - CHEST PAIN [None]
  - DYSPNOEA [None]
